FAERS Safety Report 6838353-7 (Version None)
Quarter: 2010Q3

REPORT INFORMATION
  Report Type: 
  Country: None (occurrence: None)
  Receive Date: 20100713
  Receipt Date: 20070608
  Transmission Date: 20110219
  Serious: No
  Sender: FDA-Public Use
  Company Number: US-PFIZER INC-2007047829

PATIENT
  Sex: Male

DRUGS (5)
  1. CHANTIX [Suspect]
     Indication: SMOKING CESSATION THERAPY
     Route: 048
     Dates: start: 20070604
  2. HYDROCHLOROTHIAZIDE [Concomitant]
  3. ALLOPURINOL [Concomitant]
  4. COREG [Concomitant]
  5. LIPITOR [Concomitant]

REACTIONS (4)
  - ABDOMINAL PAIN UPPER [None]
  - CONSTIPATION [None]
  - INSOMNIA [None]
  - NAUSEA [None]
